FAERS Safety Report 15948499 (Version 1)
Quarter: 2019Q1

REPORT INFORMATION
  Report Type: Report from Study
  Country: DE (occurrence: DE)
  Receive Date: 20190212
  Receipt Date: 20190212
  Transmission Date: 20190417
  Serious: Yes (Death)
  Sender: FDA-Public Use
  Company Number: DE-ACCORD-105999

PATIENT
  Age: 77 Year
  Sex: Male

DRUGS (4)
  1. BENDAMUSTINE/BENDAMUSTINE HYDROCHLORIDE [Suspect]
     Active Substance: BENDAMUSTINE HYDROCHLORIDE
     Indication: CHRONIC LYMPHOCYTIC LEUKAEMIA
     Dosage: D1 AND D2 OF C1-6
     Route: 042
  2. PARACETAMOL [Concomitant]
     Active Substance: ACETAMINOPHEN
     Indication: PREMEDICATION
     Dosage: APPROX. 30 MINUTES PRE-DOSING
  3. OBINUTUZUMAB. [Suspect]
     Active Substance: OBINUTUZUMAB
     Indication: CHRONIC LYMPHOCYTIC LEUKAEMIA
     Dosage: D1 OF CYCLE 1 AT AN INFUSION RATE OF 12.5 MG/H,ALSO TAKEN 1000 MG(OND8 ANDD15 OF C1)AND ON D1OFC2-6
  4. DEXAMETHASONE. [Concomitant]
     Active Substance: DEXAMETHASONE
     Indication: PREMEDICATION
     Route: 048

REACTIONS (1)
  - Arrhythmia [Fatal]
